FAERS Safety Report 11946731 (Version 2)
Quarter: 2016Q1

REPORT INFORMATION
  Report Type: Spontaneous
  Country: US (occurrence: US)
  Receive Date: 20160125
  Receipt Date: 20160129
  Transmission Date: 20160526
  Serious: No
  Sender: FDA-Public Use
  Company Number: US-AMGEN-USASP2015138477

PATIENT
  Sex: Male

DRUGS (1)
  1. REPATHA [Suspect]
     Active Substance: EVOLOCUMAB
     Indication: PRODUCT USED FOR UNKNOWN INDICATION
     Dosage: UNK
     Route: 065

REACTIONS (7)
  - Depressed mood [Not Recovered/Not Resolved]
  - Rash macular [Unknown]
  - Swelling face [Unknown]
  - Anger [Not Recovered/Not Resolved]
  - Skin discolouration [Unknown]
  - Blood glucose increased [Unknown]
  - Crying [Not Recovered/Not Resolved]
